FAERS Safety Report 4509015-6 (Version None)
Quarter: 2004Q4

REPORT INFORMATION
  Report Type: 
  Country: None (occurrence: None)
  Receive Date: 20041122
  Receipt Date: 20041122
  Transmission Date: 20050328
  Serious: Yes (Hospitalization)
  Sender: FDA-Public Use
  Company Number: None

PATIENT
  Age: 9 Year
  Sex: Female

DRUGS (10)
  1. METHYLPREDNISOLONE [Suspect]
     Indication: TRANSPLANT REJECTION
  2. TACROLIMUS [Concomitant]
  3. PREDNISONE [Concomitant]
  4. ACYCLOVIR [Concomitant]
  5. ASPIRIN [Concomitant]
  6. DILTIAZEM [Concomitant]
  7. LANSOPRAZOLE [Concomitant]
  8. MULTIVITAMIN WITH IRON [Concomitant]
  9. NYSTATIN [Concomitant]
  10. SEPTRA [Concomitant]

REACTIONS (2)
  - ABDOMINAL PAIN [None]
  - HEADACHE [None]
